FAERS Safety Report 5127299-0 (Version None)
Quarter: 2006Q4

REPORT INFORMATION
  Report Type: 
  Country: None (occurrence: None)
  Receive Date: 20061013
  Receipt Date: 20060918
  Transmission Date: 20070319
  Serious: Yes (Life-Threatening, Hospitalization)
  Sender: FDA-Public Use
  Company Number: DE-ABBOTT-06P-062-0344065-00

PATIENT
  Sex: Male
  Weight: 68 kg

DRUGS (14)
  1. ZEMPLAR [Suspect]
     Indication: RENAL DISORDER
     Route: 042
     Dates: start: 20060808, end: 20060822
  2. ZEMPLAR [Suspect]
     Route: 042
     Dates: start: 20060531, end: 20060619
  3. ZEMPLAR [Suspect]
     Route: 042
     Dates: start: 20060620, end: 20060703
  4. ZEMPLAR [Suspect]
     Route: 042
     Dates: start: 20060704, end: 20060807
  5. ZEMPLAR [Suspect]
     Dates: start: 20060919
  6. CANDESARTAN CILEXETIL [Concomitant]
     Indication: HYPERTENSION
     Route: 048
     Dates: start: 19980101
  7. CARVEDILOL [Concomitant]
     Indication: HYPERTENSION
     Route: 048
     Dates: start: 20010101
  8. AMLODIPINE BESYLATE [Concomitant]
     Indication: HYPERTENSION
     Dates: start: 20060701
  9. ASPIRIN [Concomitant]
     Indication: CORONARY ARTERY DISEASE
     Route: 048
     Dates: start: 19990101
  10. VITARENAL [Concomitant]
     Indication: RENAL FAILURE CHRONIC
     Route: 048
     Dates: start: 20000101
  11. CALCIUM ACETATE [Concomitant]
     Indication: RENAL FAILURE CHRONIC
     Dates: start: 20060601
  12. LEVOTHYROXINE SODIUM [Concomitant]
     Indication: GOITRE
     Route: 048
     Dates: start: 20060101
  13. VALORON N [Concomitant]
     Indication: POLYNEUROPATHY
     Route: 048
     Dates: start: 20060601
  14. EPOETIN ALFA [Concomitant]
     Indication: NEPHROGENIC ANAEMIA
     Route: 042
     Dates: start: 19980101

REACTIONS (2)
  - LARGE INTESTINE PERFORATION [None]
  - PERITONITIS [None]
